FAERS Safety Report 4985852-9 (Version None)
Quarter: 2006Q2

REPORT INFORMATION
  Report Type: 
  Country: None (occurrence: None)
  Receive Date: 20060428
  Receipt Date: 20050729
  Transmission Date: 20061013
  Serious: No
  Sender: FDA-Public Use
  Company Number: US-GLAXOSMITHKLINE-A0568268A

PATIENT
  Age: 27 Year
  Sex: Female

DRUGS (4)
  1. ZOFRAN [Suspect]
     Dosage: 8MG FOUR TIMES PER DAY
     Route: 048
     Dates: start: 20050726
  2. VITAMIN [Concomitant]
  3. TYLENOL (CAPLET) [Concomitant]
  4. UNISOM [Concomitant]

REACTIONS (2)
  - DRUG EXPOSURE DURING PREGNANCY [None]
  - HEADACHE [None]
